FAERS Safety Report 23888738 (Version 1)
Quarter: 2024Q2

REPORT INFORMATION
  Report Type: Spontaneous
  Country: US (occurrence: None)
  Receive Date: 20240522
  Receipt Date: 20240522
  Transmission Date: 20240715
  Serious: Yes (Life-Threatening)
  Sender: FDA-Public Use
  Company Number: None

PATIENT
  Age: 37 Year
  Sex: Female
  Weight: 88.9 kg

DRUGS (2)
  1. MORPHINE SULFATE [Suspect]
     Active Substance: MORPHINE SULFATE
     Indication: Anaesthesia
     Dosage: EPIDURAL
     Route: 008
     Dates: start: 20240507, end: 20240507
  2. MORPHINE SULFATE [Concomitant]
     Active Substance: MORPHINE SULFATE
     Dates: start: 20240507, end: 20240507

REACTIONS (6)
  - Bradycardia [None]
  - Somnolence [None]
  - Confusional state [None]
  - Body temperature decreased [None]
  - PCO2 decreased [None]
  - Hypothermia [None]

NARRATIVE: CASE EVENT DATE: 20240507
